FAERS Safety Report 12205786 (Version 1)
Quarter: 2016Q1

REPORT INFORMATION
  Report Type: Spontaneous
  Country: US (occurrence: US)
  Receive Date: 20160323
  Receipt Date: 20160323
  Transmission Date: 20160526
  Serious: Yes (Hospitalization, Other)
  Sender: FDA-Public Use
  Company Number: US-APOTEX-2016AP007201

PATIENT
  Age: 44 Year
  Sex: Female

DRUGS (18)
  1. RISPERIDONE. [Suspect]
     Active Substance: RISPERIDONE
     Dosage: 1 MG, BID
     Route: 065
  2. CLOZAPINE. [Interacting]
     Active Substance: CLOZAPINE
     Indication: PSYCHOTIC DISORDER
     Dosage: 25 MG, PER DAY
     Route: 065
  3. VALPROIC ACID ORAL SOLUTION USP [Interacting]
     Active Substance: VALPROIC ACID
     Indication: SCHIZOAFFECTIVE DISORDER BIPOLAR TYPE
     Dosage: 1250 MG, Q.H.S.
     Route: 065
  4. CLOZAPINE. [Interacting]
     Active Substance: CLOZAPINE
     Dosage: 50 MG, PER DAY
     Route: 065
  5. CLOZAPINE. [Interacting]
     Active Substance: CLOZAPINE
     Dosage: 100 MG, PER DAY
     Route: 065
  6. CLOZAPINE. [Interacting]
     Active Substance: CLOZAPINE
     Dosage: 150 MG, PER DAY
     Route: 065
  7. VALPROIC ACID ORAL SOLUTION USP [Interacting]
     Active Substance: VALPROIC ACID
     Dosage: 1000 MG, Q.H.S.
     Route: 065
  8. RISPERIDONE. [Suspect]
     Active Substance: RISPERIDONE
     Indication: SCHIZOAFFECTIVE DISORDER BIPOLAR TYPE
     Dosage: 50 MG EVERY 2 WEEKS
     Route: 030
  9. CLOZAPINE. [Interacting]
     Active Substance: CLOZAPINE
     Dosage: 300 MG, PER DAY
     Route: 065
  10. CLOZAPINE. [Interacting]
     Active Substance: CLOZAPINE
     Dosage: 350 MG, Q.H.S.
     Route: 065
  11. BENZATROPINE [Concomitant]
     Active Substance: BENZTROPINE
     Indication: SCHIZOAFFECTIVE DISORDER BIPOLAR TYPE
     Dosage: 1 MG, BID
     Route: 065
  12. RISPERIDONE. [Suspect]
     Active Substance: RISPERIDONE
     Indication: SCHIZOAFFECTIVE DISORDER BIPOLAR TYPE
     Dosage: 4 MG, Q.H.S.
     Route: 065
  13. VALPROIC ACID ORAL SOLUTION USP [Interacting]
     Active Substance: VALPROIC ACID
     Dosage: 500 MG, Q.AM
     Route: 065
  14. CLOZAPINE. [Interacting]
     Active Substance: CLOZAPINE
     Dosage: 200 MG, PER DAY
     Route: 065
  15. LORAZEPAM. [Concomitant]
     Active Substance: LORAZEPAM
     Indication: AGITATION
     Dosage: 4 MG, UNK
     Route: 042
  16. METOPROLOL. [Suspect]
     Active Substance: METOPROLOL
     Indication: TACHYCARDIA
     Dosage: 50 MG, BID
     Route: 065
  17. CLOZAPINE. [Interacting]
     Active Substance: CLOZAPINE
     Dosage: 400 MG, PER DAY
     Route: 065
  18. CLOZAPINE. [Interacting]
     Active Substance: CLOZAPINE
     Dosage: 500 MG, Q.H.S.
     Route: 065

REACTIONS (3)
  - Myocarditis [Recovered/Resolved]
  - Drug interaction [Recovered/Resolved]
  - Drug ineffective [Unknown]
